FAERS Safety Report 12593266 (Version 1)
Quarter: 2016Q3

REPORT INFORMATION
  Report Type: Spontaneous
  Country: US (occurrence: US)
  Receive Date: 20160726
  Receipt Date: 20160726
  Transmission Date: 20161109
  Serious: No
  Sender: FDA-Public Use
  Company Number: US-ABBVIE-16P-163-1559657-00

PATIENT
  Age: 60 Year
  Sex: Female
  Weight: 65.77 kg

DRUGS (2)
  1. CYTOMEL [Suspect]
     Active Substance: LIOTHYRONINE SODIUM
     Indication: THYROID DISORDER
     Route: 060
  2. SYNTHROID [Suspect]
     Active Substance: LEVOTHYROXINE SODIUM
     Indication: PRODUCT USED FOR UNKNOWN INDICATION
     Route: 065
     Dates: start: 1993

REACTIONS (8)
  - Incorrect route of drug administration [Unknown]
  - Adverse drug reaction [Unknown]
  - Acne [Unknown]
  - Mobility decreased [Unknown]
  - Muscle spasms [Unknown]
  - Drug ineffective [Unknown]
  - Hyperthyroidism [Unknown]
  - Feeling abnormal [Unknown]
